FAERS Safety Report 10861854 (Version 1)
Quarter: 2015Q1

REPORT INFORMATION
  Report Type: Spontaneous
  Country: US (occurrence: US)
  Receive Date: 20150224
  Receipt Date: 20150224
  Transmission Date: 20150721
  Serious: Yes (Death)
  Sender: FDA-Public Use
  Company Number: US-BANPHARM-20153510

PATIENT
  Age: 84 Year
  Sex: Female

DRUGS (3)
  1. IBUPROFEN UNKNOWN PRODUCT [Suspect]
     Active Substance: IBUPROFEN
  2. DOXEPIN [Suspect]
     Active Substance: DOXEPIN
  3. SALICYLATE [Suspect]
     Active Substance: SALICYLIC ACID

REACTIONS (2)
  - Exposure via ingestion [None]
  - Completed suicide [Fatal]
